FAERS Safety Report 25067121 (Version 1)
Quarter: 2025Q1

REPORT INFORMATION
  Report Type: Spontaneous
  Country: US (occurrence: US)
  Receive Date: 20250312
  Receipt Date: 20250312
  Transmission Date: 20250409
  Serious: Yes (Other)
  Sender: AUROBINDO
  Company Number: US-AUROBINDO-AUR-APL-2024-022582

PATIENT
  Age: 2 Month
  Sex: Male

DRUGS (1)
  1. ACYCLOVIR [Suspect]
     Active Substance: ACYCLOVIR
     Indication: Herpes simplex
     Route: 065

REACTIONS (6)
  - Erythema multiforme [Unknown]
  - Congenital syphilis [Recovered/Resolved]
  - Skin lesion [Unknown]
  - Condition aggravated [Unknown]
  - Scab [Unknown]
  - Foetal exposure during pregnancy [Unknown]
